FAERS Safety Report 9795528 (Version 2)
Quarter: 2014Q1

REPORT INFORMATION
  Report Type: Spontaneous
  Country: US (occurrence: US)
  Receive Date: 20140103
  Receipt Date: 20140207
  Transmission Date: 20141002
  Serious: No
  Sender: FDA-Public Use
  Company Number: US-JNJFOC-20140100066

PATIENT
  Age: 24 Year
  Sex: Female

DRUGS (5)
  1. INVEGA SUSTENNA [Suspect]
     Indication: SCHIZOPHRENIA
     Route: 030
     Dates: start: 20131223
  2. BUSPAR [Concomitant]
     Indication: ANXIETY
     Route: 048
     Dates: start: 20131220
  3. HYDROXYZINE PAMOATE [Concomitant]
     Indication: PRURITUS
     Route: 048
     Dates: start: 20131220
  4. HYDROXYZINE PAMOATE [Concomitant]
     Indication: INSOMNIA
     Route: 048
     Dates: start: 20131220
  5. HYDROXYZINE PAMOATE [Concomitant]
     Indication: ANXIETY
     Route: 048
     Dates: start: 20131220

REACTIONS (1)
  - Injection site infection [Recovered/Resolved]
